FAERS Safety Report 25612787 (Version 4)
Quarter: 2025Q4

REPORT INFORMATION
  Report Type: Spontaneous
  Country: CA (occurrence: CA)
  Receive Date: 20250728
  Receipt Date: 20251020
  Transmission Date: 20260117
  Serious: Yes (Other)
  Sender: ASTELLAS
  Company Number: CA-PFIZER INC-PV202500063808

PATIENT
  Age: 77 Year
  Sex: Male

DRUGS (24)
  1. PADCEV [Suspect]
     Active Substance: ENFORTUMAB VEDOTIN-EJFV
     Indication: Transitional cell carcinoma metastatic
     Dosage: POWDER FOR SOLUTION FOR INFUSION?87 MG
     Route: 065
     Dates: start: 20250512
  2. PADCEV [Suspect]
     Active Substance: ENFORTUMAB VEDOTIN-EJFV
     Dosage: POWDER FOR SOLUTION FOR INFUSION?UNK
     Route: 065
     Dates: start: 20250505
  3. PADCEV [Suspect]
     Active Substance: ENFORTUMAB VEDOTIN-EJFV
     Dosage: 110 MG, D1 AND D8; POWDER FOR SOLUTION FOR INFUSION
     Route: 042
     Dates: start: 20250526
  4. PADCEV [Suspect]
     Active Substance: ENFORTUMAB VEDOTIN-EJFV
     Dosage: 74 MG, CYCLIC, CYCLE 5 DAY 1 AND 8 FOR CYCLE OF 21 DAYS?POWDER FOR SOLUTION FOR INFUSION
     Route: 042
     Dates: start: 20250623
  5. PADCEV [Suspect]
     Active Substance: ENFORTUMAB VEDOTIN-EJFV
     Dosage: 74 MG, CYCLIC, CYCLE 3 DAY 1, DAY 8 IN CYCLE OF 21 DAYS; POWDER FOR SOLUTION FOR INFUSION
     Route: 042
     Dates: start: 20250630
  6. PADCEV [Suspect]
     Active Substance: ENFORTUMAB VEDOTIN-EJFV
     Dosage: 74 MG, CYCLIC, FREQUENCY DAY 1 AND DAY 8 OF 21-DAY CYCLE; POWDER FOR SOLUTION FOR INFUSION
     Route: 042
     Dates: start: 20250714
  7. PADCEV [Suspect]
     Active Substance: ENFORTUMAB VEDOTIN-EJFV
     Dosage: 74 MG, CYCLIC, FREQUENCY DAY 1 AND DAY 8 OF 21-DAY CYCLE; POWDER FOR SOLUTION FOR INFUSION
     Route: 042
     Dates: start: 20250721
  8. PADCEV [Suspect]
     Active Substance: ENFORTUMAB VEDOTIN-EJFV
     Dosage: 74 MG, CYCLIC, FREQUENCY DAY 1 AND DAY 8 OF 21-DAY CYCLE; POWDER FOR SOLUTION FOR INFUSION
     Route: 042
     Dates: start: 20250805
  9. PADCEV [Suspect]
     Active Substance: ENFORTUMAB VEDOTIN-EJFV
     Dosage: 74 MG, CYCLIC, FREQUENCY DAY 1 AND DAY 8 OF 21-DAY CYCLE; POWDER FOR SOLUTION FOR INFUSION
     Route: 042
     Dates: start: 20250812
  10. PADCEV [Suspect]
     Active Substance: ENFORTUMAB VEDOTIN-EJFV
     Dosage: 57 MG, CYCLIC, FREQUENCY DAY 1 AND DAY 8 OF 21-DAY CYCLE; POWDER FOR SOLUTION FOR INFUSION
     Route: 042
     Dates: start: 20250825
  11. PADCEV [Suspect]
     Active Substance: ENFORTUMAB VEDOTIN-EJFV
     Dosage: 57 MG, CYCLIC, FREQUENCY DAY 1 AND DAY 8 OF 21-DAY CYCLE; POWDER FOR SOLUTION FOR INFUSION
     Route: 042
     Dates: start: 20250902
  12. PADCEV [Suspect]
     Active Substance: ENFORTUMAB VEDOTIN-EJFV
     Dosage: 38 MG, CYCLIC, FREQUENCY DAY 1 AND DAY 8 OF 21-DAY CYCLE; POWDER FOR SOLUTION FOR INFUSION
     Route: 042
     Dates: start: 20250915
  13. PADCEV [Suspect]
     Active Substance: ENFORTUMAB VEDOTIN-EJFV
     Dosage: 38 MG, CYCLIC, FREQUENCY DAY 1 AND DAY 8 OF 21-DAY CYCLE; POWDER FOR SOLUTION FOR INFUSION
     Route: 042
     Dates: start: 20250922
  14. PADCEV [Suspect]
     Active Substance: ENFORTUMAB VEDOTIN-EJFV
     Dosage: 38 MG, CYCLIC, FREQUENCY DAY 1 AND DAY 8 OF 21-DAY CYCLE; POWDER FOR SOLUTION FOR INFUSION
     Route: 042
     Dates: start: 20251006
  15. PADCEV [Suspect]
     Active Substance: ENFORTUMAB VEDOTIN-EJFV
     Dosage: 38 MG, CYCLIC, FREQUENCY DAY 1 AND DAY 8 OF 21-DAY CYCLE; POWDER FOR SOLUTION FOR INFUSION
     Route: 042
     Dates: start: 20251014
  16. PANAX GINSENG WHOLE [Concomitant]
     Active Substance: PANAX GINSENG WHOLE
     Indication: Product used for unknown indication
     Dosage: ONGOING
     Route: 065
  17. KEYTRUDA [Concomitant]
     Active Substance: PEMBROLIZUMAB
     Indication: Transitional cell carcinoma metastatic
     Dosage: ONGOING
     Route: 050
  18. LYRICA [Concomitant]
     Active Substance: PREGABALIN
     Indication: Product used for unknown indication
     Dosage: UNK
     Route: 065
     Dates: start: 20250915
  19. DIMENHYDRINATE [Concomitant]
     Active Substance: DIMENHYDRINATE
     Indication: Product used for unknown indication
     Dosage: 25-50MG PO/IV, AS NEEDED
     Route: 050
  20. EPINEPHRINE [Concomitant]
     Active Substance: EPINEPHRINE
     Indication: Product used for unknown indication
     Dosage: UNK, AS NEEDED
     Route: 050
  21. ALBUTEROL [Concomitant]
     Active Substance: ALBUTEROL
     Indication: Product used for unknown indication
     Dosage: UNK, AS NEEDED
     Route: 050
  22. HYDROCORTISONE [Concomitant]
     Active Substance: HYDROCORTISONE
     Indication: Product used for unknown indication
     Dosage: UNK, AS NEEDED
     Route: 042
  23. .ALPHA.-TOCOPHEROL [Concomitant]
     Active Substance: .ALPHA.-TOCOPHEROL
     Indication: Product used for unknown indication
     Dosage: ONGOING
     Route: 065
  24. FUROSEMIDE [Concomitant]
     Active Substance: FUROSEMIDE
     Indication: Product used for unknown indication
     Dosage: UNK?ONGOING
     Route: 065

REACTIONS (21)
  - Weight decreased [Not Recovered/Not Resolved]
  - Neuropathy peripheral [Not Recovered/Not Resolved]
  - Condition aggravated [Not Recovered/Not Resolved]
  - Infusion related reaction [Unknown]
  - Dry skin [Not Recovered/Not Resolved]
  - Gout [Not Recovered/Not Resolved]
  - Arthritis [Unknown]
  - Vision blurred [Unknown]
  - Dry eye [Unknown]
  - Conjunctivitis [Unknown]
  - Pain [Not Recovered/Not Resolved]
  - Lacrimation increased [Not Recovered/Not Resolved]
  - Fatigue [Unknown]
  - Diarrhoea [Recovered/Resolved]
  - Gastritis [Recovered/Resolved]
  - Paraesthesia [Unknown]
  - Vomiting [Recovered/Resolved]
  - Alopecia [Not Recovered/Not Resolved]
  - Rash [Recovered/Resolved]
  - Oedema peripheral [Not Recovered/Not Resolved]
  - Spondylitis [Recovered/Resolved]

NARRATIVE: CASE EVENT DATE: 20250101
